FAERS Safety Report 7337697-2 (Version None)
Quarter: 2011Q1

REPORT INFORMATION
  Report Type: 
  Country: None (occurrence: None)
  Receive Date: 20110303
  Receipt Date: 20110303
  Transmission Date: 20110831
  Serious: Yes (Hospitalization)
  Sender: FDA-Public Use
  Company Number: None

PATIENT
  Sex: Female
  Weight: 90.8 kg

DRUGS (5)
  1. DOXORUBICIN HCL [Concomitant]
  2. VANCOMYCIN [Suspect]
     Indication: FEBRILE NEUTROPENIA
     Dosage: 2.5G IV
     Route: 042
     Dates: start: 20110224, end: 20110227
  3. CYCLOPHOSPHAMIDE [Concomitant]
  4. CEFTAZIDIME [Suspect]
     Indication: FEBRILE NEUTROPENIA
     Dosage: 6G DAILY IV
     Route: 042
     Dates: start: 20110224, end: 20110227
  5. ABRAXANE [Suspect]
     Dates: start: 20100608, end: 20100831

REACTIONS (4)
  - FEBRILE NEUTROPENIA [None]
  - COUGH [None]
  - EPISTAXIS [None]
  - SINUS HEADACHE [None]
